FAERS Safety Report 10971421 (Version 5)
Quarter: 2015Q2

REPORT INFORMATION
  Report Type: Report from Study
  Country: US (occurrence: US)
  Receive Date: 20150331
  Receipt Date: 20150603
  Transmission Date: 20150821
  Serious: Yes (Other)
  Sender: FDA-Public Use
  Company Number: US-PFIZER INC-2015106392

PATIENT
  Age: 57 Year
  Sex: Male
  Weight: 124 kg

DRUGS (6)
  1. OXYCODONE [Concomitant]
     Active Substance: OXYCODONE
     Indication: PHANTOM PAIN
     Dosage: 10 MG, EVERY 4 HRS AS NEEDED
  2. PALBOCICLIB [Suspect]
     Active Substance: PALBOCICLIB
     Indication: LIPOSARCOMA METASTATIC
     Dosage: 125 MG, CYCLIC, DAILY X 21 DAYS OUT OF 28 DAYS
     Route: 048
     Dates: start: 20150220
  3. INSULIN REGULAR HUMAN [Concomitant]
     Indication: DIABETES MELLITUS
     Dosage: UNK, 2X/DAY (27 UNITS)
     Route: 058
  4. IBUPROFEN. [Concomitant]
     Active Substance: IBUPROFEN
     Indication: PAIN
     Dosage: 400 MG, AS NEEDED
     Route: 048
  5. FENTANYL. [Concomitant]
     Active Substance: FENTANYL
     Indication: PAIN
     Dosage: 25 MCG/ HOURS EVERY 72 HOURS
     Route: 062
  6. NPH INSULIN [Concomitant]
     Active Substance: INSULIN BEEF
     Indication: DIABETES MELLITUS
     Dosage: UNK, AS NEEDED (8/S)
     Route: 058

REACTIONS (4)
  - Pneumonia [Not Recovered/Not Resolved]
  - Lymphocyte count decreased [Not Recovered/Not Resolved]
  - Depression [Not Recovered/Not Resolved]
  - Hyponatraemia [Recovered/Resolved]

NARRATIVE: CASE EVENT DATE: 20150227
